FAERS Safety Report 10055001 (Version 2)
Quarter: 2014Q2

REPORT INFORMATION
  Report Type: Report from Study
  Country: US (occurrence: US)
  Receive Date: 20140402
  Receipt Date: 20140609
  Transmission Date: 20141212
  Serious: Yes (Other)
  Sender: FDA-Public Use
  Company Number: US-ABBVIE-14P-163-1217685-00

PATIENT
  Sex: Female

DRUGS (3)
  1. LUPRON DEPOT [Suspect]
     Indication: ENDOMETRIOSIS
     Route: 030
     Dates: start: 20140115, end: 20140115
  2. LUPRON DEPOT [Suspect]
     Route: 030
     Dates: start: 20140210, end: 20140210
  3. LUPRON DEPOT [Suspect]
     Route: 030
     Dates: start: 20140310, end: 20140310

REACTIONS (2)
  - Foot fracture [Unknown]
  - Hot flush [Recovering/Resolving]
